FAERS Safety Report 8387206-4 (Version None)
Quarter: 2012Q2

REPORT INFORMATION
  Report Type: 
  Country: None (occurrence: None)
  Receive Date: 20120525
  Receipt Date: 20120515
  Transmission Date: 20120825
  Serious: No
  Sender: FDA-Public Use
  Company Number: JP-UCBSA-057404

PATIENT
  Age: 30 Year
  Sex: Female

DRUGS (2)
  1. TEGRETOL [Concomitant]
     Route: 048
  2. KEPPRA [Suspect]
     Route: 048
     Dates: start: 20120201, end: 20120301

REACTIONS (1)
  - NEUTROPHIL COUNT DECREASED [None]
